FAERS Safety Report 21511793 (Version 2)
Quarter: 2022Q4

REPORT INFORMATION
  Report Type: Other
  Country: US (occurrence: US)
  Receive Date: 20221027
  Receipt Date: 20221206
  Transmission Date: 20230112
  Serious: No
  Sender: FDA-Public Use
  Company Number: US-DECIPHERA PHARMACEUTICALS LLC-2022US000839

PATIENT
  Sex: Male

DRUGS (3)
  1. QINLOCK [Suspect]
     Active Substance: RIPRETINIB
     Indication: Neoplasm malignant
     Dosage: 150 MILLIGRAM, QD
     Route: 048
     Dates: start: 20220829
  2. QINLOCK [Suspect]
     Active Substance: RIPRETINIB
     Dosage: 150 MILLIGRAM, QD
     Route: 048
  3. QINLOCK [Suspect]
     Active Substance: RIPRETINIB
     Dosage: 100 MILLIGRAM, QD (TWO TABLETS SOMETIMES)
     Route: 048

REACTIONS (8)
  - Hypersensitivity [Unknown]
  - Fatigue [Unknown]
  - Alopecia [Unknown]
  - Neoplasm progression [Unknown]
  - Feeling abnormal [Unknown]
  - Vomiting [Unknown]
  - Product use in unapproved indication [Unknown]
  - Underdose [Unknown]
